FAERS Safety Report 25206344 (Version 2)
Quarter: 2025Q2

REPORT INFORMATION
  Report Type: Spontaneous
  Country: IT (occurrence: IT)
  Receive Date: 20250417
  Receipt Date: 20250625
  Transmission Date: 20250716
  Serious: Yes (Other)
  Sender: ROCHE
  Company Number: IT-ROCHE-10000257569

PATIENT
  Age: 50 Year
  Sex: Male

DRUGS (8)
  1. EMICIZUMAB [Suspect]
     Active Substance: EMICIZUMAB
     Indication: Factor VIII deficiency
     Route: 065
     Dates: start: 20200521
  2. NOVOSEVEN [Concomitant]
     Active Substance: COAGULATION FACTOR VIIA RECOMBINANT HUMAN
  3. Klott [Concomitant]
  4. IRBESARTAN [Concomitant]
     Active Substance: IRBESARTAN
  5. ETORICOXIB [Concomitant]
     Active Substance: ETORICOXIB
     Indication: Arthralgia
  6. ETORICOXIB [Concomitant]
     Active Substance: ETORICOXIB
     Indication: Arthralgia
  7. BISOPROLOL [Concomitant]
     Active Substance: BISOPROLOL
  8. Lipidosterolic extract of Serenoa repens [Concomitant]

REACTIONS (2)
  - Cerebral haemorrhage [Recovered/Resolved]
  - Injury [Recovered/Resolved]

NARRATIVE: CASE EVENT DATE: 20250115
